FAERS Safety Report 4920947-7 (Version None)
Quarter: 2006Q1

REPORT INFORMATION
  Report Type: 
  Country: None (occurrence: None)
  Receive Date: 20060223
  Receipt Date: 20051128
  Transmission Date: 20060701
  Serious: Yes (Death, Hospitalization, Disabling)
  Sender: FDA-Public Use
  Company Number: US-MERCK-0511USA04421

PATIENT
  Age: 81 Year
  Sex: Male
  Weight: 102 kg

DRUGS (10)
  1. VIOXX [Suspect]
     Indication: ARTHRITIS
     Route: 048
     Dates: start: 20000512, end: 20010830
  2. VIOXX [Suspect]
     Route: 048
     Dates: end: 20031025
  3. TOPROL-XL [Concomitant]
     Route: 065
  4. XANAX [Concomitant]
     Route: 065
  5. RESTORIL [Concomitant]
     Route: 065
  6. PLAVIX [Concomitant]
     Route: 065
  7. DOXEPIN HYDROCHLORIDE [Concomitant]
     Route: 065
  8. PROCARDIA XL [Concomitant]
     Route: 065
  9. PROSCAR [Concomitant]
     Route: 065
  10. VASOTEC RPD [Concomitant]
     Route: 065

REACTIONS (42)
  - ABDOMINAL PAIN LOWER [None]
  - AGGRESSION [None]
  - ATRIAL FIBRILLATION [None]
  - CALCULUS URETERIC [None]
  - CARDIO-RESPIRATORY ARREST [None]
  - CAROTID ARTERY OCCLUSION [None]
  - CEREBRAL ARTERIOSCLEROSIS [None]
  - CEREBROVASCULAR ACCIDENT [None]
  - CHOLECYSTITIS [None]
  - CONSTIPATION [None]
  - CORONARY ARTERY DISEASE [None]
  - COUGH [None]
  - DEPRESSION [None]
  - DIVERTICULUM [None]
  - DRUG HYPERSENSITIVITY [None]
  - DYSPEPSIA [None]
  - FLANK PAIN [None]
  - GASTRIC ULCER [None]
  - GASTRITIS [None]
  - HALLUCINATION [None]
  - HELICOBACTER INFECTION [None]
  - HIATUS HERNIA [None]
  - HYPERKALAEMIA [None]
  - HYPOGLYCAEMIA [None]
  - INTERVERTEBRAL DISC DEGENERATION [None]
  - INTERVERTEBRAL DISC PROTRUSION [None]
  - ISCHAEMIA [None]
  - LEUKOCYTOSIS [None]
  - MENINGIOMA [None]
  - MENTAL DISORDER DUE TO A GENERAL MEDICAL CONDITION [None]
  - NAUSEA [None]
  - PYELONEPHRITIS [None]
  - RECTAL HAEMORRHAGE [None]
  - RESPIRATORY TRACT CONGESTION [None]
  - SEPSIS [None]
  - SEPTIC SHOCK [None]
  - SPINAL OSTEOARTHRITIS [None]
  - STAPHYLOCOCCAL INFECTION [None]
  - URINARY TRACT INFECTION [None]
  - UROSEPSIS [None]
  - VENTRICULAR TACHYCARDIA [None]
  - VOMITING [None]
